FAERS Safety Report 16565102 (Version 1)
Quarter: 2019Q3

REPORT INFORMATION
  Report Type: Spontaneous
  Country: US (occurrence: US)
  Receive Date: 20190712
  Receipt Date: 20190712
  Transmission Date: 20191004
  Serious: Yes (Hospitalization)
  Sender: FDA-Public Use
  Company Number: US-AMNEAL PHARMACEUTICALS-2019AMN00758

PATIENT
  Age: 3 Year
  Sex: Male
  Weight: 16.3 kg

DRUGS (2)
  1. OXCARBAZEPINE. [Suspect]
     Active Substance: OXCARBAZEPINE
     Indication: PARTIAL SEIZURES
     Dosage: 16.8 ML, 1X/DAY (5.6ML EVERY 8 HOURS)
     Route: 065
     Dates: start: 20190106
  2. LACOSAMIDE. [Concomitant]
     Active Substance: LACOSAMIDE
     Indication: PRODUCT USED FOR UNKNOWN INDICATION
     Dosage: 8.4 ML (EVERY 8HRS)

REACTIONS (3)
  - Epilepsy [Not Recovered/Not Resolved]
  - Therapeutic product effect incomplete [Unknown]
  - Product packaging issue [Unknown]

NARRATIVE: CASE EVENT DATE: 201904
